FAERS Safety Report 4864561-0 (Version None)
Quarter: 2005Q4

REPORT INFORMATION
  Report Type: 
  Country: None (occurrence: None)
  Receive Date: 20051222
  Receipt Date: 20051214
  Transmission Date: 20060501
  Serious: Yes (Other)
  Sender: FDA-Public Use
  Company Number: PHBS2005BR18532

PATIENT
  Sex: Female

DRUGS (4)
  1. GLEEVEC [Suspect]
     Indication: CHRONIC MYELOID LEUKAEMIA
     Dosage: 400 MG, QD
     Route: 048
  2. GLEEVEC [Suspect]
     Dosage: UNK
  3. GLEEVEC [Suspect]
     Dosage: UNK
  4. GLEEVEC [Suspect]
     Dosage: 600 MG, QD
     Route: 048

REACTIONS (6)
  - BLOOD CREATININE INCREASED [None]
  - KIDNEY ENLARGEMENT [None]
  - LEUKOPENIA [None]
  - OLIGURIA [None]
  - PANIC DISORDER [None]
  - RENAL FAILURE [None]
